FAERS Safety Report 11957141 (Version 1)
Quarter: 2016Q1

REPORT INFORMATION
  Report Type: Spontaneous
  Country: US (occurrence: US)
  Receive Date: 20160126
  Receipt Date: 20160126
  Transmission Date: 20160526
  Serious: Yes (Other)
  Sender: FDA-Public Use
  Company Number: US-ACTELION-A-NJ2016-130110

PATIENT
  Age: 53 Year
  Sex: Male

DRUGS (4)
  1. VALCHLOR [Suspect]
     Active Substance: MECHLORETHAMINE
     Indication: MYCOSIS FUNGOIDES
     Dosage: UNK
     Route: 061
     Dates: start: 20150714
  2. PHENTERMINE. [Concomitant]
     Active Substance: PHENTERMINE
  3. TOBRAMYCIN. [Concomitant]
     Active Substance: TOBRAMYCIN
  4. MUSTARGEN [Concomitant]
     Active Substance: MECHLORETHAMINE HYDROCHLORIDE

REACTIONS (3)
  - No therapeutic response [Unknown]
  - Rash [Unknown]
  - Squamous cell carcinoma [Unknown]
